FAERS Safety Report 11137794 (Version 1)
Quarter: 2015Q2

REPORT INFORMATION
  Report Type: Report from Study
  Country: US (occurrence: US)
  Receive Date: 20150526
  Receipt Date: 20150526
  Transmission Date: 20150821
  Serious: No
  Sender: FDA-Public Use
  Company Number: US-MALLINCKRODT-T201500830

PATIENT
  Age: 39 Year
  Sex: Female

DRUGS (1)
  1. H.P. ACTHAR [Suspect]
     Active Substance: CORTICOTROPIN
     Indication: MULTIPLE SCLEROSIS
     Dosage: 80 U, QD
     Route: 065
     Dates: start: 20120302, end: 20120306

REACTIONS (2)
  - Chest discomfort [Unknown]
  - Anxiety [Unknown]
